FAERS Safety Report 8893321 (Version 1)
Quarter: 2012Q4

REPORT INFORMATION
  Report Type: 
  Country: IT (occurrence: IT)
  Receive Date: 20121108
  Receipt Date: 20121108
  Transmission Date: 20130627
  Serious: Yes (Hospitalization)
  Sender: FDA-Public Use
  Company Number: IT-SANOFI-AVENTIS-2012SA081093

PATIENT
  Age: 48 Year
  Sex: Male

DRUGS (7)
  1. GLIMEPIRIDE [Suspect]
     Indication: DRUG USE FOR UNKNOWN INDICATION
     Dosage: strength: 2mg
     Route: 048
     Dates: start: 20000102, end: 20121027
  2. BROMAZEPAM [Concomitant]
     Route: 048
  3. METHADONE HYDROCHLORIDE [Concomitant]
     Dosage: strength: 1mg/mL
     Route: 048
  4. NORVIR [Concomitant]
     Dosage: strength: 100mg
     Route: 048
  5. CARDIRENE [Concomitant]
     Dosage: strength: 160mg
     Route: 048
  6. ATAZANAVIR SULFATE [Concomitant]
     Dosage: strength: 300mg
     Route: 048
  7. EPIVIR [Concomitant]
     Dosage: strength: 300mg
     Route: 048

REACTIONS (2)
  - Hypokalaemia [Unknown]
  - Hypoglycaemic coma [Unknown]
